FAERS Safety Report 24632310 (Version 2)
Quarter: 2024Q4

REPORT INFORMATION
  Report Type: Spontaneous
  Country: AT (occurrence: AT)
  Receive Date: 20241118
  Receipt Date: 20241203
  Transmission Date: 20250115
  Serious: Yes (Hospitalization, Other)
  Sender: SANOFI AVENTIS
  Company Number: AT-SANOFI-02301819

PATIENT
  Age: 61 Year
  Sex: Male

DRUGS (1)
  1. DUPIXENT [Suspect]
     Active Substance: DUPILUMAB
     Indication: Dermatitis atopic
     Dosage: UNK
     Dates: start: 202408, end: 202411

REACTIONS (3)
  - Atrial fibrillation [Unknown]
  - Atrial flutter [Unknown]
  - Eczema [Unknown]

NARRATIVE: CASE EVENT DATE: 20241001
